FAERS Safety Report 7312146-9 (Version None)
Quarter: 2011Q1

REPORT INFORMATION
  Report Type: 
  Country: None (occurrence: None)
  Receive Date: 20110224
  Receipt Date: 20110218
  Transmission Date: 20110831
  Serious: Yes (Hospitalization)
  Sender: FDA-Public Use
  Company Number: Z0007641A

PATIENT
  Sex: Male
  Weight: 73.5 kg

DRUGS (7)
  1. FLUDARA [Suspect]
     Route: 042
     Dates: start: 20100921
  2. CYCLOPHOSPHAMIDE [Suspect]
     Route: 042
     Dates: start: 20100921
  3. CEFTAZIDIME [Concomitant]
     Indication: INFECTION PROPHYLAXIS
     Dosage: 2G THREE TIMES PER DAY
     Route: 042
     Dates: start: 20110125, end: 20110201
  4. TEICOPLANINE [Concomitant]
     Dosage: 200MG PER DAY
     Route: 042
     Dates: start: 20110128, end: 20110131
  5. CIPROFLOXACIN [Concomitant]
     Indication: INFECTION PROPHYLAXIS
     Dosage: 500MG PER DAY
     Route: 048
     Dates: start: 20110203, end: 20110208
  6. OFATUMUMAB [Suspect]
     Route: 042
     Dates: start: 20100921
  7. TEICOPLANINE [Concomitant]
     Indication: INFECTION PROPHYLAXIS
     Dosage: 200MG TWICE PER DAY
     Route: 042
     Dates: start: 20110126, end: 20110127

REACTIONS (1)
  - FEBRILE NEUTROPENIA [None]
